FAERS Safety Report 4557205-9 (Version None)
Quarter: 2005Q1

REPORT INFORMATION
  Report Type: 
  Country: None (occurrence: None)
  Receive Date: 20050120
  Receipt Date: 20030411
  Transmission Date: 20050727
  Serious: Yes (Hospitalization, Other)
  Sender: FDA-Public Use
  Company Number: US-BRISTOL-MYERS SQUIBB COMPANY-12239992

PATIENT
  Age: 66 Year
  Sex: Male

DRUGS (7)
  1. CISPLATIN [Suspect]
     Indication: SQUAMOUS CELL CARCINOMA
     Dates: start: 20001024, end: 20001024
  2. CETUXIMAB [Suspect]
     Indication: SQUAMOUS CELL CARCINOMA
     Route: 042
     Dates: start: 20001024, end: 20001024
  3. RADIATION THERAPY [Suspect]
     Indication: SQUAMOUS CELL CARCINOMA
     Dosage: 180 CGY.  LAST TREATMENT 07-NOV-2000
     Dates: start: 20001024, end: 20001024
  4. VERAPAMIL [Concomitant]
  5. MONOPRIL [Concomitant]
  6. ZOCOR [Concomitant]
  7. PAXIL [Concomitant]

REACTIONS (4)
  - NEPHROPATHY TOXIC [None]
  - PYREXIA [None]
  - STAPHYLOCOCCAL BACTERAEMIA [None]
  - URINARY TRACT INFECTION [None]
